FAERS Safety Report 5515464-X (Version None)
Quarter: 2007Q4

REPORT INFORMATION
  Report Type: 
  Country: None (occurrence: None)
  Receive Date: 20071113
  Receipt Date: 20070223
  Transmission Date: 20080405
  Serious: No
  Sender: FDA-Public Use
  Company Number: A0640776A

PATIENT
  Age: 81 Year
  Sex: Female

DRUGS (4)
  1. COREG [Suspect]
     Indication: HEART RATE DECREASED
     Dosage: 6.25MG THREE TIMES PER DAY
     Route: 048
  2. BLOOD PRESSURE MEDICATION [Concomitant]
  3. COUMADIN [Concomitant]
  4. VASOTEC [Concomitant]

REACTIONS (2)
  - ASTHENIA [None]
  - DIZZINESS [None]
